FAERS Safety Report 15139642 (Version 1)
Quarter: 2018Q3

REPORT INFORMATION
  Report Type: Spontaneous
  Country: PT (occurrence: PT)
  Receive Date: 20180713
  Receipt Date: 20180713
  Transmission Date: 20181010
  Serious: Yes (Hospitalization, Other)
  Sender: FDA-Public Use
  Company Number: PT-WEST-WARD PHARMACEUTICALS CORP.-PT-H14001-18-05560

PATIENT
  Age: 35 Year
  Sex: Female

DRUGS (2)
  1. AMOXICILLIN/CLAVULANIC ACID [Suspect]
     Active Substance: AMOXICILLIN\CLAVULANIC ACID
     Indication: PNEUMONIA
     Dosage: UNK ()
     Route: 065
  2. AZITHROMYCIN ANHYDROUS. [Suspect]
     Active Substance: AZITHROMYCIN ANHYDROUS
     Indication: PNEUMONIA
     Dosage: UNK ()
     Route: 065

REACTIONS (4)
  - Drug ineffective [Unknown]
  - Pyrexia [Recovering/Resolving]
  - Pulmonary tuberculosis [Recovering/Resolving]
  - Chest pain [Recovering/Resolving]
